FAERS Safety Report 9263230 (Version 4)
Quarter: 2013Q4

REPORT INFORMATION
  Report Type: Spontaneous
  Country: IT (occurrence: IT)
  Receive Date: 20130430
  Receipt Date: 20131017
  Transmission Date: 20140711
  Serious: Yes (Hospitalization, Other)
  Sender: FDA-Public Use
  Company Number: IT-PFIZER INC-2013132537

PATIENT
  Age: 80 Year
  Sex: Male

DRUGS (7)
  1. ATENOLOL [Suspect]
     Dosage: 25 MG, SINGLE
     Dates: start: 20130323, end: 20130323
  2. KANRENOL [Concomitant]
     Dosage: 200 MG, UNK
     Route: 065
  3. LASIX [Concomitant]
     Dosage: 25 MG, UNK
     Route: 065
  4. TRIATEC [Concomitant]
     Dosage: 2.5 MG, UNK
     Route: 065
  5. VENITRIN [Concomitant]
     Dosage: 5 MG/24 H
     Route: 062
  6. SINTROM [Concomitant]
     Dosage: 4 MG UNK
     Route: 065
  7. ATENOLOL [Suspect]
     Dosage: UNK
     Dates: start: 1997, end: 20130316

REACTIONS (9)
  - Palpitations [Recovered/Resolved]
  - Gravitational oedema [Unknown]
  - Bradycardia [Recovered/Resolved]
  - Bradycardia [Recovered/Resolved]
  - Hypotension [Recovered/Resolved]
  - Asthenia [Recovered/Resolved]
  - Cardiac failure [Unknown]
  - Dyspnoea [Unknown]
  - Intentional drug misuse [Unknown]
